FAERS Safety Report 16485801 (Version 1)
Quarter: 2019Q2

REPORT INFORMATION
  Report Type: Spontaneous
  Country: US (occurrence: US)
  Receive Date: 20190627
  Receipt Date: 20190627
  Transmission Date: 20190711
  Serious: Yes (Other)
  Sender: FDA-Public Use
  Company Number: PHHY2019US144280

PATIENT
  Age: 30 Year
  Sex: Male

DRUGS (7)
  1. ELVITEGRAVIR [Concomitant]
     Active Substance: ELVITEGRAVIR
     Indication: HIV INFECTION
     Dosage: UNK
     Route: 065
  2. CARBOPLATIN. [Suspect]
     Active Substance: CARBOPLATIN
     Indication: METASTASES TO LYMPH NODES
     Dosage: UNK
     Route: 065
  3. PEMBROLIZUMAB. [Suspect]
     Active Substance: PEMBROLIZUMAB
     Indication: METASTASES TO LYMPH NODES
     Dosage: UNK
     Route: 065
  4. TENOFOVIR ALAFENAMIDE [Concomitant]
     Active Substance: TENOFOVIR ALAFENAMIDE
     Indication: HIV INFECTION
     Dosage: UNK
     Route: 065
  5. EMTRICITABINA [Concomitant]
     Active Substance: EMTRICITABINE
     Indication: HIV INFECTION
     Dosage: UNK
     Route: 065
  6. COBICISTAT [Concomitant]
     Active Substance: COBICISTAT
     Indication: HIV INFECTION
     Dosage: UNK
     Route: 065
  7. 5 FLUOROURACIL [Suspect]
     Active Substance: FLUOROURACIL
     Indication: METASTASES TO LYMPH NODES
     Dosage: UNK
     Route: 065

REACTIONS (11)
  - Bacterial infection [Unknown]
  - Pyrexia [Unknown]
  - Groin abscess [Unknown]
  - Dysuria [Unknown]
  - Tachycardia [Unknown]
  - Lymph node abscess [Unknown]
  - Product use in unapproved indication [Unknown]
  - Bacteraemia [Unknown]
  - Hydronephrosis [Unknown]
  - Pelvic abscess [Unknown]
  - Urinary tract infection [Unknown]
